FAERS Safety Report 9176492 (Version 1)
Quarter: 2013Q1

REPORT INFORMATION
  Report Type: Spontaneous
  Country: US (occurrence: None)
  Receive Date: 20130320
  Receipt Date: 20130320
  Transmission Date: 20140127
  Serious: No
  Sender: FDA-Public Use
  Company Number: None

PATIENT
  Sex: Male

DRUGS (1)
  1. ATORVASTATIN 20MG [Suspect]
     Indication: HYPERLIPIDAEMIA
     Dates: start: 201302

REACTIONS (1)
  - Dyspepsia [None]
